FAERS Safety Report 7359334-3 (Version None)
Quarter: 2011Q1

REPORT INFORMATION
  Report Type: 
  Country: None (occurrence: None)
  Receive Date: 20110317
  Receipt Date: 20110308
  Transmission Date: 20110831
  Serious: Yes (Other)
  Sender: FDA-Public Use
  Company Number: PHHY2011US14886

PATIENT
  Sex: Female

DRUGS (3)
  1. RECLAST [Suspect]
     Dosage: 5 MG/100 ML/ YEAR
     Dates: start: 20101230
  2. CELEBREX [Suspect]
  3. MOBIC [Suspect]

REACTIONS (8)
  - RHEUMATOID ARTHRITIS [None]
  - MYALGIA [None]
  - HEADACHE [None]
  - PAIN IN EXTREMITY [None]
  - ARTHRALGIA [None]
  - OEDEMA PERIPHERAL [None]
  - MOVEMENT DISORDER [None]
  - ARTHRITIS [None]
